FAERS Safety Report 5346574-8 (Version None)
Quarter: 2007Q2

REPORT INFORMATION
  Report Type: 
  Country: None (occurrence: None)
  Receive Date: 20070430
  Receipt Date: 20070308
  Transmission Date: 20071010
  Serious: No
  Sender: FDA-Public Use
  Company Number: 261453

PATIENT
  Age: 55 Year
  Sex: Female

DRUGS (4)
  1. LEVEMIR [Suspect]
     Indication: BLOOD INSULIN
     Dosage: SUBCUTANEOUS
     Route: 058
     Dates: start: 20070301
  2. LEVEMIR [Suspect]
     Indication: DIABETES MELLITUS INSULIN-DEPENDENT
     Dosage: SUBCUTANEOUS
     Route: 058
     Dates: start: 20070301
  3. COUMADIN [Concomitant]
  4. EFFEXOR [Concomitant]

REACTIONS (1)
  - INJECTION SITE BRUISING [None]
